FAERS Safety Report 7781995-5 (Version None)
Quarter: 2011Q3

REPORT INFORMATION
  Report Type: 
  Country: None (occurrence: None)
  Receive Date: 20110927
  Receipt Date: 20110915
  Transmission Date: 20111222
  Serious: Yes (Other)
  Sender: FDA-Public Use
  Company Number: PHEH2011US04782

PATIENT
  Age: 53 Year
  Sex: Female
  Weight: 106 kg

DRUGS (1)
  1. GILENYA [Suspect]
     Indication: RELAPSING-REMITTING MULTIPLE SCLEROSIS
     Dosage: 0.5 MG PER DAY
     Route: 048
     Dates: start: 20101210

REACTIONS (2)
  - RENAL CELL CARCINOMA [None]
  - EXOSTOSIS [None]
